FAERS Safety Report 11049246 (Version 3)
Quarter: 2016Q1

REPORT INFORMATION
  Report Type: Spontaneous
  Country: US (occurrence: US)
  Receive Date: 20150420
  Receipt Date: 20160328
  Transmission Date: 20160525
  Serious: No
  Sender: FDA-Public Use
  Company Number: US-009507513-1504USA017803

PATIENT
  Sex: Male
  Weight: 90.7 kg

DRUGS (1)
  1. PROPECIA [Suspect]
     Active Substance: FINASTERIDE
     Indication: ANDROGENETIC ALOPECIA
     Dosage: 1 MG, QD
     Route: 048
     Dates: start: 2004, end: 201201

REACTIONS (8)
  - Onychomycosis [Recovering/Resolving]
  - Erectile dysfunction [Not Recovered/Not Resolved]
  - Dermal cyst [Unknown]
  - Anxiety [Unknown]
  - Libido decreased [Not Recovered/Not Resolved]
  - Rash pustular [Unknown]
  - Sexual dysfunction [Not Recovered/Not Resolved]
  - Skin papilloma [Unknown]

NARRATIVE: CASE EVENT DATE: 2004
